FAERS Safety Report 18478731 (Version 1)
Quarter: 2020Q4

REPORT INFORMATION
  Report Type: Spontaneous
  Country: JP (occurrence: JP)
  Receive Date: 20201109
  Receipt Date: 20201109
  Transmission Date: 20210114
  Serious: Yes (Hospitalization, Other)
  Sender: FDA-Public Use
  Company Number: JP-AMGEN-JPNSP2020178762

PATIENT
  Age: 60 Year
  Sex: Male
  Weight: 64.6 kg

DRUGS (19)
  1. ALFAROL [Concomitant]
     Active Substance: ALFACALCIDOL
     Dosage: 0.25 MICROGRAM, QD,  IN THE EVENING
     Route: 048
     Dates: start: 20200316
  2. MUCOSTA [Concomitant]
     Active Substance: REBAMIPIDE
     Dosage: 1 DOSAGE FORM, Q8H, AFTER EACH MEAL
     Route: 048
  3. DARBEPOETIN ALFA [Concomitant]
     Active Substance: DARBEPOETIN ALFA
     Dosage: 10 MICROGRAM, QWK, ON MONDAYS
     Route: 065
  4. BAYASPIRIN [Concomitant]
     Active Substance: ASPIRIN
     Dosage: 1 DOSAGE FORM, QD,  IN THE MORNING
     Route: 048
  5. DARBEPOETIN ALFA [Concomitant]
     Active Substance: DARBEPOETIN ALFA
     Dosage: 5 MICROGRAM
     Route: 065
  6. PARSABIV [Suspect]
     Active Substance: ETELCALCETIDE HYDROCHLORIDE
     Indication: HYPERPARATHYROIDISM SECONDARY
     Dosage: 5 MILLIGRAM,, Q56H
     Route: 010
     Dates: start: 20190520, end: 20190714
  7. PARSABIV [Suspect]
     Active Substance: ETELCALCETIDE HYDROCHLORIDE
     Dosage: 2.5 MG, Q56H
     Route: 010
     Dates: start: 20190715, end: 20200417
  8. TEGRETOL [Concomitant]
     Active Substance: CARBAMAZEPINE
     Dosage: 2 DOSAGE FORM, QD, IN THE EVENING
     Route: 048
  9. PRECIPITATED CALCIUM CARBONATE [Concomitant]
     Active Substance: CALCIUM CARBONATE
     Dosage: Q8H, IMMEDIATELY AFTER EACH MEAL
     Route: 048
     Dates: start: 20200202
  10. ROCALTROL [Concomitant]
     Active Substance: CALCITRIOL
     Dosage: 1 MICROGRAM, QWK
     Route: 065
     Dates: start: 20190415, end: 20190818
  11. ROCALTROL [Concomitant]
     Active Substance: CALCITRIOL
     Dosage: 2 MICROGRAM, QWK
     Route: 065
     Dates: start: 20190820, end: 20191117
  12. RENIVACE [Concomitant]
     Active Substance: ENALAPRIL
     Dosage: 1 DOSAGE FORM, QD,  IN THE EVENING
     Route: 048
  13. RIONA [Concomitant]
     Active Substance: FERRIC CITRATE ANHYDROUS
     Dosage: 250 MILLIGRAM, Q8H, IMMEDIATELY AFTER EACH MEAL
     Route: 048
  14. EURODIN [ESTAZOLAM] [Concomitant]
     Active Substance: ESTAZOLAM
     Dosage: 1 DOSAGE FORM, QD, BEFORE SLEEP
     Route: 048
  15. PARSABIV [Suspect]
     Active Substance: ETELCALCETIDE HYDROCHLORIDE
     Dosage: 2.5 MG, Q84H
     Route: 010
     Dates: start: 20200420, end: 20201019
  16. LYRICA [Concomitant]
     Active Substance: PREGABALIN
     Dosage: 2 DOSAGE FORM, QD, IN THE MORNING
     Route: 048
  17. DIART [Concomitant]
     Active Substance: AZOSEMIDE
     Dosage: 1 DOSAGE FORM, QD,  IN THE MORNING
     Route: 048
  18. ROCALTROL [Concomitant]
     Active Substance: CALCITRIOL
     Dosage: 1 MICROGRAM, QWK
     Route: 065
     Dates: start: 20191118, end: 20191215
  19. ROCALTROL [Concomitant]
     Active Substance: CALCITRIOL
     Dosage: 0.5 MICROGRAM, QWK
     Route: 065
     Dates: start: 20191216, end: 20200119

REACTIONS (1)
  - Intervertebral discitis [Not Recovered/Not Resolved]

NARRATIVE: CASE EVENT DATE: 20201024
